FAERS Safety Report 8383648 (Version 3)
Quarter: 2013Q1

REPORT INFORMATION
  Report Type: Spontaneous
  Country: US (occurrence: US)
  Receive Date: 20120201
  Receipt Date: 20130131
  Transmission Date: 20140127
  Serious: Yes (Other)
  Sender: FDA-Public Use
  Company Number: US-PFIZER INC-2012024337

PATIENT
  Age: 56 Year
  Sex: Female

DRUGS (1)
  1. GEODON [Suspect]
     Dosage: 40 MG, 2X/DAY

REACTIONS (4)
  - Bipolar disorder [Unknown]
  - Obsessive-compulsive disorder [Unknown]
  - Attention deficit/hyperactivity disorder [Unknown]
  - Impaired work ability [Unknown]
